FAERS Safety Report 4445941-4 (Version None)
Quarter: 2004Q3

REPORT INFORMATION
  Report Type: 
  Country: None (occurrence: None)
  Receive Date: 20040907
  Receipt Date: 20040820
  Transmission Date: 20050211
  Serious: Yes (Hospitalization, Other)
  Sender: FDA-Public Use
  Company Number: 2004-UK-00706UK

PATIENT
  Age: 86 Year
  Sex: Male

DRUGS (8)
  1. COMBIVENT [Suspect]
     Indication: CHRONIC OBSTRUCTIVE AIRWAYS DISEASE
     Dosage: SEE IMAGE
     Route: 055
     Dates: start: 19970915
  2. COMBIVENT [Suspect]
     Indication: EMPHYSEMA
     Dosage: SEE IMAGE
     Route: 055
     Dates: start: 19970915
  3. HUMAN MIXTARD (HUMAN MIXTARD) (AMF) [Concomitant]
  4. ASPIRIN (ACETYLSALICYLIC ACID) (TAM) [Concomitant]
  5. BENDROFLUAZIDE (BENDROFLUMETHIAZIDE) (TA) [Concomitant]
  6. RAMIPRIL [Concomitant]
  7. PHYLLOCONTIN (AMINOPHYLLINE) (TA) [Concomitant]
  8. CLOPIDOGREL (CLOPIDOGREL) [Concomitant]

REACTIONS (1)
  - TRANSIENT ISCHAEMIC ATTACK [None]
